FAERS Safety Report 8799568 (Version 2)
Quarter: 2013Q2

REPORT INFORMATION
  Report Type: Spontaneous
  Country: US (occurrence: US)
  Receive Date: 20120919
  Receipt Date: 20130424
  Transmission Date: 20140414
  Serious: Yes (Other)
  Sender: FDA-Public Use
  Company Number: US-PFIZER INC-2012231191

PATIENT
  Age: 74 Year
  Sex: Female
  Weight: 54.42 kg

DRUGS (5)
  1. LYRICA [Suspect]
     Indication: GROIN PAIN
     Dosage: 75 MG, DAILY
     Dates: start: 20120913
  2. LYRICA [Suspect]
     Indication: BACK DISORDER
     Dosage: 75 MG, 3X/DAY
     Dates: start: 2012, end: 201304
  3. LYRICA [Suspect]
     Indication: ARTHRALGIA
  4. LYRICA [Suspect]
     Indication: BACK PAIN
  5. ATENOLOL [Concomitant]
     Indication: HYPERTENSION
     Dosage: 1 DF, 1X/DAY

REACTIONS (5)
  - Arthropathy [Unknown]
  - Pain [Unknown]
  - Local swelling [Unknown]
  - Nausea [Unknown]
  - Dizziness [Unknown]
